FAERS Safety Report 7499704-6 (Version None)
Quarter: 2011Q2

REPORT INFORMATION
  Report Type: 
  Country: None (occurrence: None)
  Receive Date: 20110524
  Receipt Date: 20110517
  Transmission Date: 20111010
  Serious: Yes (Other)
  Sender: FDA-Public Use
  Company Number: JP-ROCHE-765363

PATIENT
  Age: 37 Year
  Sex: Male

DRUGS (3)
  1. METHYLPREDNISOLONE [Concomitant]
     Dosage: NOTE: DOSAGE IS UNCERTAIN.
  2. CYCLOSPORINE [Concomitant]
     Dosage: NOTE: DOSAGE IS UNCERTAIN.
  3. CELLCEPT [Suspect]
     Indication: GRAFT VERSUS HOST DISEASE
     Dosage: NOTE: DOSAGE IS UNCERTAIN.
     Route: 048

REACTIONS (1)
  - CYSTITIS HAEMORRHAGIC [None]
